FAERS Safety Report 4350404-0 (Version None)
Quarter: 2004Q2

REPORT INFORMATION
  Report Type: 
  Country: None (occurrence: None)
  Receive Date: 20040430
  Receipt Date: 20040419
  Transmission Date: 20050107
  Serious: Yes (Hospitalization)
  Sender: FDA-Public Use
  Company Number: 200411643FR

PATIENT
  Age: 57 Year
  Sex: Female

DRUGS (6)
  1. SOLUPRED [Suspect]
     Route: 048
     Dates: start: 20031231, end: 20040119
  2. IMOVANE [Suspect]
     Route: 048
  3. KETEK [Suspect]
     Route: 048
  4. ATARAX [Suspect]
     Route: 048
  5. BRONCHODUAL [Suspect]
     Route: 055
  6. COMBIVENT [Suspect]
     Route: 055

REACTIONS (14)
  - ASTHENIA [None]
  - CERVICAL SPINAL STENOSIS [None]
  - CHRONIC OBSTRUCTIVE AIRWAYS DISEASE EXACERBATED [None]
  - DECREASED ACTIVITY [None]
  - EMPHYSEMA [None]
  - EPISTAXIS [None]
  - HYPERTHERMIA [None]
  - HYPOREFLEXIA [None]
  - MUSCULAR WEAKNESS [None]
  - MYOPATHY STEROID [None]
  - PARESIS [None]
  - PHYSICAL EXAMINATION ABNORMAL [None]
  - RESPIRATORY FAILURE [None]
  - THROMBOCYTOPENIA [None]
